FAERS Safety Report 7373295-2 (Version None)
Quarter: 2011Q1

REPORT INFORMATION
  Report Type: 
  Country: None (occurrence: None)
  Receive Date: 20110324
  Receipt Date: 20110315
  Transmission Date: 20110831
  Serious: Yes (Hospitalization)
  Sender: FDA-Public Use
  Company Number: US-MPIJNJ-2011-01074

PATIENT
  Age: 66 Year
  Sex: Female
  Weight: 69.388 kg

DRUGS (1)
  1. VELCADE [Suspect]
     Indication: MULTIPLE MYELOMA
     Dosage: 2.3 MG, CYCLIC
     Route: 042
     Dates: start: 20101208, end: 20110202

REACTIONS (3)
  - GASTROENTERITIS [None]
  - HYPOXIA [None]
  - STAPHYLOCOCCAL INFECTION [None]
